FAERS Safety Report 10227670 (Version 1)
Quarter: 2014Q2

REPORT INFORMATION
  Report Type: Spontaneous
  Country: US (occurrence: None)
  Receive Date: 20140609
  Receipt Date: 20140609
  Transmission Date: 20141212
  Serious: No
  Sender: FDA-Public Use
  Company Number: None

PATIENT
  Age: 65 Year
  Sex: Female
  Weight: 61.69 kg

DRUGS (1)
  1. NITROFURANTOIN MONOHYDRATE [Suspect]
     Indication: URINARY TRACT INFECTION
     Dosage: 1 CAPSULE, TWICE DAILY, TAKEN BY MOUTH
     Route: 048
     Dates: start: 20140602, end: 20140602

REACTIONS (17)
  - Tremor [None]
  - Chills [None]
  - Tremor [None]
  - Tremor [None]
  - Middle insomnia [None]
  - Urinary incontinence [None]
  - Vision blurred [None]
  - Visual impairment [None]
  - Heart rate increased [None]
  - Chest discomfort [None]
  - Back pain [None]
  - Arthralgia [None]
  - Decreased appetite [None]
  - Weight decreased [None]
  - Sneezing [None]
  - Cough [None]
  - Respiratory disorder [None]
